FAERS Safety Report 9857456 (Version 1)
Quarter: 2014Q1

REPORT INFORMATION
  Report Type: Report from Study
  Country: CA (occurrence: CA)
  Receive Date: 20140131
  Receipt Date: 20140131
  Transmission Date: 20141002
  Serious: Yes (Other)
  Sender: FDA-Public Use
  Company Number: CA-ROCHE-1337552

PATIENT
  Sex: Female
  Weight: 50.8 kg

DRUGS (12)
  1. RITUXAN [Suspect]
     Indication: RHEUMATOID ARTHRITIS
     Route: 042
     Dates: start: 20121210
  2. RITUXAN [Suspect]
     Indication: VASCULITIS
  3. ACETAMINOPHEN [Concomitant]
     Indication: PREMEDICATION
     Route: 048
     Dates: start: 20121210
  4. DIPHENHYDRAMINE HCL [Concomitant]
     Indication: PREMEDICATION
     Route: 048
     Dates: start: 20121210
  5. METHYLPREDNISOLONE [Concomitant]
     Indication: PREMEDICATION
     Route: 042
     Dates: start: 20121210
  6. PREDNISONE [Concomitant]
  7. HYDROXYCHLOROQUINE [Concomitant]
  8. REACTINE (CANADA) [Concomitant]
  9. CYPROHEPTADINE [Concomitant]
  10. PREVACID [Concomitant]
  11. METHOTREXATE [Concomitant]
  12. FOLIC ACID [Concomitant]

REACTIONS (2)
  - Mass [Unknown]
  - Eye haemorrhage [Unknown]
